FAERS Safety Report 14147269 (Version 8)
Quarter: 2018Q1

REPORT INFORMATION
  Report Type: Report from Study
  Country: FR (occurrence: FR)
  Receive Date: 20171031
  Receipt Date: 20180327
  Transmission Date: 20180508
  Serious: Yes (Death, Hospitalization, Other)
  Sender: FDA-Public Use
  Company Number: FR-SEATTLE GENETICS-2017SGN02644

PATIENT
  Age: 51 Year
  Sex: Male
  Weight: 72 kg

DRUGS (11)
  1. PREDNISONE. [Concomitant]
     Active Substance: PREDNISONE
     Indication: PRODUCT USED FOR UNKNOWN INDICATION
     Dosage: 10 MG, UNK
     Route: 048
  2. BRENTUXIMAB VEDOTIN [Suspect]
     Active Substance: BRENTUXIMAB VEDOTIN
     Indication: HODGKIN^S DISEASE
     Dosage: 130 MG, UNK
     Route: 042
     Dates: start: 20171013, end: 20171023
  3. CICLOSPORIN [Concomitant]
     Active Substance: CYCLOSPORINE
     Indication: IMMUNOSUPPRESSANT DRUG THERAPY
     Dosage: 75 MG, UNK
     Route: 048
  4. TINZAPARIN SODIUM [Concomitant]
     Active Substance: TINZAPARIN SODIUM
     Indication: ANTICOAGULANT THERAPY
     Dosage: UNK
     Route: 048
     Dates: start: 20171013
  5. PREDNISONE. [Concomitant]
     Active Substance: PREDNISONE
     Dosage: 10 MG, UNK
     Route: 048
  6. VINCRISTINE [Suspect]
     Active Substance: VINCRISTINE
     Indication: HODGKIN^S DISEASE
     Dosage: 2 MG, UNK
     Route: 042
     Dates: start: 20171128, end: 20180119
  7. BRENTUXIMAB VEDOTIN-MPI [Suspect]
     Active Substance: BRENTUXIMAB VEDOTIN
     Indication: HODGKIN^S DISEASE
     Dosage: 130 MG, UNK
     Route: 042
     Dates: start: 20171013, end: 20171023
  8. FLUINDIONE [Concomitant]
     Active Substance: FLUINDIONE
     Indication: ANTICOAGULANT THERAPY
     Dosage: UNK
     Route: 048
     Dates: end: 20171012
  9. BENDAMUSTINE [Concomitant]
     Active Substance: BENDAMUSTINE
     Indication: HODGKIN^S DISEASE
     Dosage: 172.5 MG, UNK
     Route: 042
     Dates: start: 20171012
  10. CYCLOPHOSPHAMIDE. [Suspect]
     Active Substance: CYCLOPHOSPHAMIDE
     Indication: HODGKIN^S DISEASE
     Dosage: 1140 MG, UNK
     Route: 042
     Dates: start: 20171128, end: 20180109
  11. PROCARBAZINE [Suspect]
     Active Substance: PROCARBAZINE
     Indication: HODGKIN^S DISEASE
     Dosage: 200 MG, UNK
     Route: 048
     Dates: start: 20171128, end: 20180109

REACTIONS (30)
  - Hypoxia [Fatal]
  - Eosinophilic pneumonia acute [Recovered/Resolved]
  - Paraesthesia [Unknown]
  - Pulmonary alveolar haemorrhage [Unknown]
  - Hyperkalaemia [Unknown]
  - Productive cough [Unknown]
  - Septic shock [Unknown]
  - Dyspnoea [Not Recovered/Not Resolved]
  - Respiratory distress [Fatal]
  - Pneumocystis jirovecii pneumonia [Unknown]
  - Pyrexia [Unknown]
  - Off label use [Unknown]
  - Hyperleukocytosis [Unknown]
  - Clostridium difficile infection [Recovered/Resolved]
  - Haemoptysis [Recovered/Resolved]
  - Thrombocytopenia [Unknown]
  - Metabolic acidosis [Unknown]
  - Dependence on oxygen therapy [Not Recovered/Not Resolved]
  - Cytomegalovirus infection [Unknown]
  - Acute kidney injury [Recovered/Resolved]
  - Acute pulmonary oedema [Not Recovered/Not Resolved]
  - Bronchial disorder [Unknown]
  - Anuria [Unknown]
  - Iliac artery occlusion [Unknown]
  - Pulmonary embolism [Unknown]
  - Diarrhoea [Recovered/Resolved]
  - Multiple organ dysfunction syndrome [Fatal]
  - Abdominal pain lower [Unknown]
  - Atrial fibrillation [Unknown]
  - Fungal infection [Unknown]

NARRATIVE: CASE EVENT DATE: 201710
